FAERS Safety Report 14979633 (Version 1)
Quarter: 2018Q2

REPORT INFORMATION
  Report Type: Spontaneous
  Country: US (occurrence: US)
  Receive Date: 20180606
  Receipt Date: 20180606
  Transmission Date: 20180711
  Serious: No
  Sender: FDA-Public Use
  Company Number: US-MYLANLABS-2018M1034323

PATIENT
  Age: 34 Year
  Sex: Female

DRUGS (1)
  1. DIAZEPAM TABLETS USP [Suspect]
     Active Substance: DIAZEPAM
     Indication: ANXIETY
     Dosage: UNK UNK, BID
     Route: 048
     Dates: start: 20180518, end: 20180520

REACTIONS (6)
  - Pruritus [Recovering/Resolving]
  - Sleep disorder [Recovering/Resolving]
  - Condition aggravated [Unknown]
  - Drug ineffective [Recovering/Resolving]
  - Panic attack [Recovering/Resolving]
  - Abdominal discomfort [None]

NARRATIVE: CASE EVENT DATE: 20180518
